FAERS Safety Report 16439582 (Version 1)
Quarter: 2019Q2

REPORT INFORMATION
  Report Type: Spontaneous
  Country: US (occurrence: US)
  Receive Date: 20190508
  Receipt Date: 20190508
  Transmission Date: 20190711
  Serious: Yes (Life-Threatening, Hospitalization, Disabling)
  Sender: FDA-Public Use
  Company Number: None

PATIENT
  Age: 89 Year
  Sex: Male
  Weight: 86.18 kg

DRUGS (7)
  1. AREDS [Concomitant]
     Active Substance: MINERALS\VITAMINS
  2. BICALUTAMIDE 50MG [Suspect]
     Active Substance: BICALUTAMIDE
     Indication: PROSTATE CANCER
     Dosage: ?          QUANTITY:90 DF DOSAGE FORM;?
     Route: 048
     Dates: start: 20181018, end: 20190322
  3. SAW PALMETTO [Concomitant]
     Active Substance: HERBALS\SAW PALMETTO
  4. GLUCOSAMINE CHONDROITIN [Concomitant]
     Active Substance: CHONDROITIN SULFATE (BOVINE)\GLUCOSAMINE HYDROCHLORIDE
  5. COD LIVER OIL [Concomitant]
     Active Substance: COD LIVER OIL
  6. ASPIRIN 81MG [Concomitant]
     Active Substance: ASPIRIN
  7. ZINC. [Concomitant]
     Active Substance: ZINC

REACTIONS (6)
  - Ischaemic stroke [None]
  - Amnesia [None]
  - Hypoacusis [None]
  - Aphasia [None]
  - Chest pain [None]
  - Blindness [None]

NARRATIVE: CASE EVENT DATE: 20190312
